FAERS Safety Report 18875720 (Version 1)
Quarter: 2021Q1

REPORT INFORMATION
  Report Type: Spontaneous
  Country: CN (occurrence: CN)
  Receive Date: 20210210
  Receipt Date: 20210210
  Transmission Date: 20210420
  Serious: Yes (Hospitalization)
  Sender: FDA-Public Use
  Company Number: CN-NOVOPROD-785501

PATIENT
  Age: 82 Year
  Sex: Female

DRUGS (1)
  1. HUMAN INSULIN [Suspect]
     Active Substance: INSULIN HUMAN
     Indication: DIABETES MELLITUS
     Dosage: 6 IU, BID
     Route: 058

REACTIONS (3)
  - Acute myocardial infarction [Unknown]
  - Blood pressure increased [Unknown]
  - Blood glucose increased [Unknown]
